FAERS Safety Report 22916152 (Version 2)
Quarter: 2023Q4

REPORT INFORMATION
  Report Type: Report from Study
  Country: US (occurrence: US)
  Receive Date: 20230907
  Receipt Date: 20231110
  Transmission Date: 20240109
  Serious: Yes (Other)
  Sender: FDA-Public Use
  Company Number: US-ARGENX-2022-ARGX-US002800

PATIENT

DRUGS (2)
  1. VYVGART [Suspect]
     Active Substance: EFGARTIGIMOD ALFA-FCAB
     Indication: Myasthenia gravis
     Dosage: 10 MG/KG
     Route: 042
  2. VYVGART [Suspect]
     Active Substance: EFGARTIGIMOD ALFA-FCAB
     Dosage: UNK MG/KG
     Route: 042
     Dates: start: 20230816

REACTIONS (23)
  - Atrial fibrillation [Recovered/Resolved]
  - Muscle spasms [Unknown]
  - Pain [Unknown]
  - Headache [Unknown]
  - Cellulitis [Recovered/Resolved]
  - Vertigo [Unknown]
  - Otorrhoea [Unknown]
  - Nonspecific reaction [Unknown]
  - Ear pain [Unknown]
  - Fall [Unknown]
  - Balance disorder [Unknown]
  - Aphasia [Unknown]
  - Visual impairment [Unknown]
  - Rhinorrhoea [Unknown]
  - Cough [Unknown]
  - Skin abrasion [Unknown]
  - Renal stone removal [Unknown]
  - Head injury [Unknown]
  - Blood calcium abnormal [Unknown]
  - Loss of personal independence in daily activities [Unknown]
  - Myasthenia gravis [Unknown]
  - Vasculitis [Unknown]
  - Unevaluable event [Unknown]

NARRATIVE: CASE EVENT DATE: 20230307
